FAERS Safety Report 24946465 (Version 1)
Quarter: 2025Q1

REPORT INFORMATION
  Report Type: Spontaneous
  Country: KR (occurrence: KR)
  Receive Date: 20250210
  Receipt Date: 20250210
  Transmission Date: 20250408
  Serious: Yes (Other)
  Sender: ORGANON
  Company Number: KR-ORGANON-O2502KOR000421

PATIENT
  Sex: Female

DRUGS (1)
  1. ETONOGESTREL [Suspect]
     Active Substance: ETONOGESTREL
     Route: 059
     Dates: start: 20240829, end: 20250131

REACTIONS (1)
  - Vaginal haemorrhage [Not Recovered/Not Resolved]
